FAERS Safety Report 11618772 (Version 1)
Quarter: 2015Q4

REPORT INFORMATION
  Report Type: Spontaneous
  Country: BR (occurrence: BR)
  Receive Date: 20151012
  Receipt Date: 20151012
  Transmission Date: 20160304
  Serious: Yes (Hospitalization, Other)
  Sender: FDA-Public Use
  Company Number: BR-ALVOGEN-2015-ALVOGEN-018646

PATIENT
  Age: 40 Year
  Sex: Male
  Weight: 62 kg

DRUGS (3)
  1. ACETYLSALICYLIC ACID [Concomitant]
     Active Substance: ASPIRIN
     Indication: ANTICOAGULANT THERAPY
     Route: 048
     Dates: start: 2007, end: 20150926
  2. OMEPRAZOLE. [Concomitant]
     Active Substance: OMEPRAZOLE
     Indication: GASTRITIS
     Dosage: 20 MG QAM
     Route: 048
     Dates: start: 2009
  3. ATENOLOL. [Suspect]
     Active Substance: ATENOLOL
     Dosage: 50 MG IN THE MORNING AND 25 MG AT NIGHT
     Route: 048
     Dates: start: 2013, end: 201507

REACTIONS (3)
  - Hypothyroidism [Unknown]
  - Syncope [Recovered/Resolved]
  - Arrhythmia [Recovered/Resolved]

NARRATIVE: CASE EVENT DATE: 20150605
